FAERS Safety Report 23580109 (Version 1)
Quarter: 2024Q1

REPORT INFORMATION
  Report Type: Spontaneous
  Country: US (occurrence: US)
  Receive Date: 20240229
  Receipt Date: 20240229
  Transmission Date: 20240410
  Serious: Yes (Other)
  Sender: FDA-Public Use
  Company Number: US-APELLIS PHARMACEUTICALS-APL-2024-003871

PATIENT
  Age: 72 Year
  Sex: Male

DRUGS (2)
  1. SYFOVRE [Suspect]
     Active Substance: PEGCETACOPLAN
     Indication: Dry age-related macular degeneration
     Dosage: UNK, OD
     Dates: start: 20231227, end: 20231227
  2. SYFOVRE [Suspect]
     Active Substance: PEGCETACOPLAN
     Dosage: UNK, OS
     Dates: start: 20240103, end: 20240103

REACTIONS (3)
  - Vitritis [Unknown]
  - Vitritis [Unknown]
  - Vitreous opacities [Unknown]

NARRATIVE: CASE EVENT DATE: 20240116
